FAERS Safety Report 19720516 (Version 1)
Quarter: 2021Q3

REPORT INFORMATION
  Report Type: Spontaneous
  Country: US (occurrence: US)
  Receive Date: 20210818
  Receipt Date: 20210818
  Transmission Date: 20211014
  Serious: No
  Sender: FDA-Public Use
  Company Number: US-AKCEA THERAPEUTICS, INC.-2021IS001439

PATIENT
  Age: 45 Year
  Sex: Female

DRUGS (2)
  1. ISSD (INTEGRATED SYRINGE SAFETY DEVICE) [Suspect]
     Active Substance: DEVICE
  2. TEGSEDI [Suspect]
     Active Substance: INOTERSEN SODIUM
     Indication: HEREDITARY NEUROPATHIC AMYLOIDOSIS
     Route: 058

REACTIONS (10)
  - Protein urine present [Unknown]
  - Creatinine urine abnormal [Unknown]
  - Urinary occult blood positive [Unknown]
  - Red blood cells urine positive [Unknown]
  - Urinary sediment present [Unknown]
  - Blood creatinine increased [Unknown]
  - Urine ketone body present [Unknown]
  - Glomerular filtration rate decreased [Unknown]
  - Urine abnormality [Unknown]
  - Bacterial test positive [Unknown]
